FAERS Safety Report 7864691-5 (Version None)
Quarter: 2011Q4

REPORT INFORMATION
  Report Type: 
  Country: None (occurrence: None)
  Receive Date: 20111025
  Receipt Date: 20111003
  Transmission Date: 20120403
  Serious: Yes (Other)
  Sender: FDA-Public Use
  Company Number: OMPQ-NO-1110S-1264

PATIENT
  Weight: 2.2 kg

DRUGS (1)
  1. OMNIPAQUE 70 [Suspect]
     Indication: DEEP VEIN THROMBOSIS
     Dosage: 122 ML, SINGLE DOSE, TRANSPLACENTAL
     Route: 064

REACTIONS (4)
  - MATERNAL DRUGS AFFECTING FOETUS [None]
  - CAESAREAN SECTION [None]
  - TRANSIENT TACHYPNOEA OF THE NEWBORN [None]
  - SMALL FOR DATES BABY [None]
